FAERS Safety Report 10465013 (Version 2)
Quarter: 2014Q4

REPORT INFORMATION
  Report Type: Spontaneous
  Country: FR (occurrence: FR)
  Receive Date: 20140919
  Receipt Date: 20141029
  Transmission Date: 20150528
  Serious: Yes (Other)
  Sender: FDA-Public Use
  Company Number: FR-GLAXOSMITHKLINE-B1034719A

PATIENT

DRUGS (1)
  1. MALARONE [Suspect]
     Active Substance: ATOVAQUONE\PROGUANIL HYDROCHLORIDE
     Indication: MALARIA
     Route: 048
     Dates: start: 20140820, end: 20140822

REACTIONS (3)
  - Oedema peripheral [Recovered/Resolved]
  - Erythema [Recovered/Resolved]
  - Pain in extremity [Recovered/Resolved]

NARRATIVE: CASE EVENT DATE: 20140826
